FAERS Safety Report 20894142 (Version 1)
Quarter: 2022Q2

REPORT INFORMATION
  Report Type: Spontaneous
  Country: US (occurrence: None)
  Receive Date: 20220531
  Receipt Date: 20220531
  Transmission Date: 20220721
  Serious: No
  Sender: FDA-Public Use
  Company Number: 2022A189650

PATIENT
  Sex: Male
  Weight: 108.9 kg

DRUGS (3)
  1. FARXIGA [Suspect]
     Active Substance: DAPAGLIFLOZIN PROPANEDIOL
     Route: 048
  2. ENTRESTO [Concomitant]
     Active Substance: SACUBITRIL\VALSARTAN
     Dosage: 97MG/103MG 2X A DAY
     Route: 065
  3. LASIX [Concomitant]
     Active Substance: FUROSEMIDE
     Indication: Dehydration

REACTIONS (8)
  - Renal disorder [Unknown]
  - Dehydration [Unknown]
  - Blood test [Unknown]
  - Pruritus genital [Not Recovered/Not Resolved]
  - Dysuria [Not Recovered/Not Resolved]
  - Genital disorder [Unknown]
  - Adverse event [Not Recovered/Not Resolved]
  - Penile infection [Not Recovered/Not Resolved]
